FAERS Safety Report 26108235 (Version 1)
Quarter: 2025Q4

REPORT INFORMATION
  Report Type: Report from Study
  Country: EU (occurrence: EU)
  Receive Date: 20251201
  Receipt Date: 20251201
  Transmission Date: 20260117
  Serious: Yes (Hospitalization)
  Sender: TEVA
  Company Number: None

PATIENT
  Age: 74 Year
  Sex: Male

DRUGS (11)
  1. FENTANYL [Interacting]
     Active Substance: FENTANYL
     Indication: Product used for unknown indication
     Dosage: 1 PATCH / 72 H - TRANSDERMAL APPLICATION 25 MICROGRAMS/H 5 TRANSDERMAL PATCHES
     Route: 058
     Dates: start: 20250814, end: 20251103
  2. FUROSEMIDE [Concomitant]
     Active Substance: FUROSEMIDE
     Indication: Product used for unknown indication
     Dosage: 3 TABLETS / 24 H - ORAL ADMINISTRATION, 30 TABLETS
     Route: 048
     Dates: start: 20250512, end: 20251103
  3. VORTIOXETINE [Interacting]
     Active Substance: VORTIOXETINE
     Indication: Product used for unknown indication
     Dosage: 1 TABLET / 24 H - ORAL ADMINISTRATION, 28 TABLETS
     Route: 048
     Dates: start: 20250625, end: 20251103
  4. TAPENTADOL [Interacting]
     Active Substance: TAPENTADOL
     Indication: Product used for unknown indication
     Dosage: 1 TABLET / 8 H - ORAL ADMINISTRATION, 30 TABLETS
     Route: 048
     Dates: start: 20250813, end: 20250821
  5. TICAGRELOR [Concomitant]
     Active Substance: TICAGRELOR
     Indication: Product used for unknown indication
     Dosage: 1/12 HOURS, 56 TABLETS
     Route: 065
     Dates: start: 20250502
  6. tamsulosin solifenacin [Concomitant]
     Indication: Product used for unknown indication
     Dosage: 1 TABLET / 24 H - ORAL ROUTE
     Route: 048
     Dates: start: 20250512, end: 20251103
  7. ASPIRIN [Concomitant]
     Active Substance: ASPIRIN
     Indication: Product used for unknown indication
     Dosage: 1/24 HOURS, 30 TABLETS
     Route: 065
     Dates: start: 20191212
  8. RAMIPRIL [Concomitant]
     Active Substance: RAMIPRIL
     Indication: Product used for unknown indication
     Dosage: 1 TABLET / 24 H - ORAL ADMINISTRATION, 28 TABLETS
     Route: 048
     Dates: start: 20250512, end: 20251103
  9. CARBIDOPA\LEVODOPA [Interacting]
     Active Substance: CARBIDOPA\LEVODOPA
     Indication: Product used for unknown indication
     Dosage: 1 TABLET / 24 H - ORAL ADMINISTRATION, RETARD 25 MG/100 MG EXTENDED RELEASE TABLETS
     Route: 048
     Dates: start: 20230126, end: 20250821
  10. BISOPROLOL [Concomitant]
     Active Substance: BISOPROLOL
     Indication: Product used for unknown indication
     Dosage: 0.5 TABLET / 24 H - ORAL ROUTE, 28 TABLETS
     Route: 048
     Dates: start: 20250604, end: 20251103
  11. HALOPERIDOL [Interacting]
     Active Substance: HALOPERIDOL
     Indication: Product used for unknown indication
     Dosage: 15 DROPS / 24 H - ORAL ADMINISTRATION, SOLUTION/SUSPENSION ORAL DROPS 30 ML 1 BOTTLE
     Route: 048
     Dates: start: 20250725, end: 20250821

REACTIONS (3)
  - Cachexia [Unknown]
  - Drug interaction [Unknown]
  - Vomiting [Unknown]

NARRATIVE: CASE EVENT DATE: 20250720
